FAERS Safety Report 13244437 (Version 1)
Quarter: 2017Q1

REPORT INFORMATION
  Report Type: Spontaneous
  Country: US (occurrence: US)
  Receive Date: 20170216
  Receipt Date: 20170216
  Transmission Date: 20170428
  Serious: No
  Sender: FDA-Public Use
  Company Number: US-JAZZ-2017-US-000024

PATIENT
  Age: 24 Year
  Sex: Male

DRUGS (7)
  1. ALLERGY                            /00000402/ [Concomitant]
  2. XYREM [Suspect]
     Active Substance: SODIUM OXYBATE
     Dosage: 4.5 G, BID
     Route: 048
     Dates: start: 201402
  3. XYREM [Suspect]
     Active Substance: SODIUM OXYBATE
     Dosage: 2 G, BID
     Route: 048
     Dates: start: 201306, end: 2013
  4. LORAZEPAM. [Concomitant]
     Active Substance: LORAZEPAM
  5. ALBUTEROL SULFATE. [Concomitant]
     Active Substance: ALBUTEROL SULFATE
  6. XYREM [Suspect]
     Active Substance: SODIUM OXYBATE
     Dosage: DOSE ADJUSTMENT
     Route: 048
     Dates: start: 2013, end: 2014
  7. SINGULAIR [Concomitant]
     Active Substance: MONTELUKAST SODIUM

REACTIONS (3)
  - Asthma [Unknown]
  - Drug dose omission [Unknown]
  - Bronchitis [Not Recovered/Not Resolved]

NARRATIVE: CASE EVENT DATE: 201611
